FAERS Safety Report 15331377 (Version 1)
Quarter: 2018Q3

REPORT INFORMATION
  Report Type: Spontaneous
  Country: US (occurrence: US)
  Receive Date: 20180829
  Receipt Date: 20180829
  Transmission Date: 20181010
  Serious: Yes (Hospitalization, Other)
  Sender: FDA-Public Use
  Company Number: US-DSJP-DSU-2017-138472

PATIENT

DRUGS (2)
  1. BENICAR [Suspect]
     Active Substance: OLMESARTAN MEDOXOMIL
     Indication: HYPERTENSION
     Dosage: 40 MG, QD
     Route: 048
     Dates: start: 20121210, end: 20161125
  2. AZOR [Suspect]
     Active Substance: AMLODIPINE BESYLATE\OLMESARTAN MEDOXOMIL
     Indication: HYPERTENSION
     Dosage: 10/40MG, QD
     Dates: start: 20121210, end: 20161125

REACTIONS (7)
  - Colitis ulcerative [Unknown]
  - Hiatus hernia [Unknown]
  - Acute kidney injury [Recovering/Resolving]
  - Haemorrhoids [Unknown]
  - Barrett^s oesophagus [Unknown]
  - Gastroenteritis viral [Unknown]
  - Sprue-like enteropathy [Recovering/Resolving]

NARRATIVE: CASE EVENT DATE: 20160904
